FAERS Safety Report 8245944-8 (Version None)
Quarter: 2012Q1

REPORT INFORMATION
  Report Type: 
  Country: None (occurrence: None)
  Receive Date: 20120330
  Receipt Date: 20120326
  Transmission Date: 20120608
  Serious: No
  Sender: FDA-Public Use
  Company Number: US-PFIZER INC-2012077666

PATIENT
  Sex: Male
  Weight: 87.075 kg

DRUGS (2)
  1. VORICONAZOLE [Suspect]
     Dosage: 200 MG, 2X/DAY
     Route: 048
     Dates: start: 20120309
  2. VORICONAZOLE [Suspect]
     Indication: FUNGAL INFECTION
     Dosage: 200 MG, 2X/DAY
     Route: 048
     Dates: start: 20120108, end: 20120218

REACTIONS (2)
  - FUNGAL INFECTION [None]
  - DRUG LEVEL INCREASED [None]
